FAERS Safety Report 6104054-6 (Version None)
Quarter: 2009Q1

REPORT INFORMATION
  Report Type: 
  Country: None (occurrence: None)
  Receive Date: 20090305
  Receipt Date: 20090305
  Transmission Date: 20090719
  Serious: Yes (Other)
  Sender: FDA-Public Use
  Company Number: US-PFIZER INC-2009152177

PATIENT
  Sex: Female

DRUGS (2)
  1. NEURONTIN [Suspect]
     Indication: FIBROMYALGIA
     Dates: start: 20040101
  2. PREDNISONE [Suspect]
     Indication: FIBROMYALGIA
     Dosage: UNK
     Dates: start: 20080101

REACTIONS (1)
  - HOMICIDAL IDEATION [None]
